FAERS Safety Report 5413248-4 (Version None)
Quarter: 2007Q3

REPORT INFORMATION
  Report Type: 
  Country: None (occurrence: None)
  Receive Date: 20070814
  Receipt Date: 20070808
  Transmission Date: 20080115
  Serious: Yes (Life-Threatening, Hospitalization, Other)
  Sender: FDA-Public Use
  Company Number: ITWYE276413DEC04

PATIENT
  Sex: Male
  Weight: 76 kg

DRUGS (7)
  1. TRETINOIN [Suspect]
     Indication: ACUTE PROMYELOCYTIC LEUKAEMIA
     Dates: start: 20041124
  2. ALLOPURINOL [Concomitant]
     Route: 048
     Dates: start: 20041124
  3. VANCOMYCIN [Concomitant]
     Route: 042
     Dates: start: 20041205, end: 20041206
  4. CEFTAZIDIME [Concomitant]
     Route: 042
     Dates: start: 20041205, end: 20041206
  5. AMIKACIN [Concomitant]
     Route: 042
     Dates: start: 20041205, end: 20041206
  6. IDARUBICIN HCL [Suspect]
     Indication: ACUTE PROMYELOCYTIC LEUKAEMIA
     Dates: start: 20041125, end: 20041201
  7. ITRACONAZOLE [Concomitant]
     Indication: PROPHYLAXIS
     Route: 048
     Dates: start: 20041126

REACTIONS (3)
  - COLITIS [None]
  - PLEURISY [None]
  - SEPTIC SHOCK [None]
